FAERS Safety Report 19808695 (Version 3)
Quarter: 2025Q1

REPORT INFORMATION
  Report Type: Report from Study
  Country: CO (occurrence: CO)
  Receive Date: 20210908
  Receipt Date: 20250311
  Transmission Date: 20250408
  Serious: Yes (Other)
  Sender: NOVARTIS
  Company Number: NVSC2021CO184123

PATIENT
  Sex: Male
  Weight: 66 kg

DRUGS (3)
  1. TASIGNA [Suspect]
     Active Substance: NILOTINIB
     Indication: Chronic myeloid leukaemia
     Dosage: UNK, Q12H (2 OF 150 MG)
     Route: 048
     Dates: start: 20210803
  2. TASIGNA [Suspect]
     Active Substance: NILOTINIB
     Dosage: 300 MG, Q12H (BID)
     Route: 048
     Dates: start: 20210804
  3. TASIGNA [Suspect]
     Active Substance: NILOTINIB
     Dosage: 300 MG, BID
     Route: 048

REACTIONS (26)
  - Thrombosis [Unknown]
  - Arthralgia [Unknown]
  - Fatigue [Not Recovered/Not Resolved]
  - Asthenia [Unknown]
  - Helicobacter infection [Unknown]
  - Abdominal distension [Recovered/Resolved]
  - Blood test abnormal [Unknown]
  - Toothache [Unknown]
  - Eye inflammation [Unknown]
  - Peripheral swelling [Unknown]
  - Sleep disorder [Unknown]
  - Phlebitis [Unknown]
  - Headache [Unknown]
  - Procedural pain [Recovering/Resolving]
  - Hair texture abnormal [Unknown]
  - Sensory disturbance [Unknown]
  - Pain in extremity [Recovering/Resolving]
  - Pain [Unknown]
  - Rash macular [Unknown]
  - Ear pain [Unknown]
  - Pain in jaw [Recovering/Resolving]
  - Back pain [Recovering/Resolving]
  - Chills [Unknown]
  - Discomfort [Unknown]
  - Cytogenetic analysis abnormal [Unknown]
  - Dyspnoea [Unknown]
